FAERS Safety Report 14549875 (Version 3)
Quarter: 2018Q3

REPORT INFORMATION
  Report Type: Report from Study
  Country: US (occurrence: US)
  Receive Date: 20180219
  Receipt Date: 20180710
  Transmission Date: 20181010
  Serious: Yes (Death, Hospitalization, Other)
  Sender: FDA-Public Use
  Company Number: US-ACADIA PHARMACEUTICALS INC.-ACA-2017-006122

PATIENT
  Age: 84 Year
  Sex: Female

DRUGS (4)
  1. NUPLAZID [Suspect]
     Active Substance: PIMAVANSERIN TARTRATE
     Indication: PARKINSON^S DISEASE PSYCHOSIS
     Dosage: 17 MG, QD 1 TAB WEEK 1
     Dates: start: 20171030, end: 201711
  2. NUPLAZID [Suspect]
     Active Substance: PIMAVANSERIN TARTRATE
     Indication: HALLUCINATION
     Dosage: 34 MG, QD 2 TAB WEEK 2
     Route: 048
     Dates: start: 201711
  3. NUPLAZID [Suspect]
     Active Substance: PIMAVANSERIN TARTRATE
     Indication: DELUSION
     Dosage: 51 MG, SINGLE
     Dates: start: 20171112, end: 20171112
  4. NUPLAZID [Suspect]
     Active Substance: PIMAVANSERIN TARTRATE
     Dosage: 34 MG, QD
     Route: 048

REACTIONS (6)
  - Hip fracture [Unknown]
  - Incorrect dose administered [Unknown]
  - Death [Fatal]
  - Fall [Unknown]
  - Prescribed underdose [Unknown]
  - Hypersomnia [Unknown]

NARRATIVE: CASE EVENT DATE: 2017
